FAERS Safety Report 12636555 (Version 1)
Quarter: 2016Q3

REPORT INFORMATION
  Report Type: Spontaneous
  Country: RO (occurrence: RO)
  Receive Date: 20160809
  Receipt Date: 20160809
  Transmission Date: 20161109
  Serious: Yes (Hospitalization)
  Sender: FDA-Public Use
  Company Number: RO-GLENMARK PHARMACEUTICALS INC, USA.-2016GMK023845

PATIENT
  Age: 64 Year
  Sex: Male

DRUGS (8)
  1. ANTINEVRALGIC [Suspect]
     Active Substance: ASPIRIN\CAFFEINE\PHENACETIN
     Indication: PAIN IN EXTREMITY
     Dosage: 2 DF, QD
     Route: 065
  2. MELOXICAM. [Interacting]
     Active Substance: MELOXICAM
     Indication: PAIN IN EXTREMITY
     Dosage: 15 MG, UNK
     Route: 065
  3. PIROXICAM. [Interacting]
     Active Substance: PIROXICAM
     Indication: PAIN IN EXTREMITY
     Dosage: 20 MG, QD
     Route: 065
  4. CELECOXIB. [Interacting]
     Active Substance: CELECOXIB
     Indication: PAIN IN EXTREMITY
     Dosage: 200 MG, QD
     Route: 065
  5. SULFAMETHOXAZOLE/TRIMETHOPRIM TABLETS [Suspect]
     Active Substance: SULFAMETHOXAZOLE\TRIMETHOPRIM
     Indication: URINARY TRACT INFECTION
     Dosage: 3 DF, QD
     Route: 065
  6. ALGOCALMIN [Concomitant]
     Active Substance: METAMIZOLE SODIUM
     Indication: PAIN IN EXTREMITY
     Dosage: 2 DF, QD
     Route: 065
  7. KETOROLAC [Interacting]
     Active Substance: KETOROLAC\KETOROLAC TROMETHAMINE
     Indication: PAIN IN EXTREMITY
     Dosage: 30 MG, UNK
     Route: 065
  8. IBUPROFEN. [Interacting]
     Active Substance: IBUPROFEN
     Indication: PAIN IN EXTREMITY
     Dosage: 200 MG, QD
     Route: 065

REACTIONS (4)
  - Rhabdomyolysis [Recovered/Resolved]
  - Self-medication [Unknown]
  - Hyperuricaemia [Unknown]
  - Extra dose administered [Unknown]
